FAERS Safety Report 15523454 (Version 1)
Quarter: 2018Q4

REPORT INFORMATION
  Report Type: Spontaneous
  Country: US (occurrence: US)
  Receive Date: 20181015
  Receipt Date: 20181015
  Transmission Date: 20190205
  Serious: Yes (Hospitalization, Other)
  Sender: FDA-Public Use
  Company Number: None

PATIENT
  Age: 49 Year

DRUGS (2)
  1. CAPECITABINE. [Suspect]
     Active Substance: CAPECITABINE
     Indication: MYOCARDIAL INFARCTION
  2. CAPECITABINE. [Suspect]
     Active Substance: CAPECITABINE
     Indication: CARDIAC DISORDER

REACTIONS (4)
  - Wrong product administered [None]
  - Product label on wrong product [None]
  - Myocardial infarction [None]
  - Product dispensing error [None]

NARRATIVE: CASE EVENT DATE: 20180104
